APPROVED DRUG PRODUCT: THIORIDAZINE HYDROCHLORIDE INTENSOL
Active Ingredient: THIORIDAZINE HYDROCHLORIDE
Strength: 100MG/ML
Dosage Form/Route: CONCENTRATE;ORAL
Application: A088942 | Product #001
Applicant: ROXANE LABORATORIES INC
Approved: Dec 16, 1985 | RLD: No | RS: No | Type: DISCN